FAERS Safety Report 10315029 (Version 1)
Quarter: 2014Q3

REPORT INFORMATION
  Report Type: Spontaneous
  Country: US (occurrence: US)
  Receive Date: 20140718
  Receipt Date: 20140718
  Transmission Date: 20150326
  Serious: Yes (Other)
  Sender: FDA-Public Use
  Company Number: PHEH2014US014241

PATIENT
  Sex: Female

DRUGS (1)
  1. GILENYA [Suspect]
     Active Substance: FINGOLIMOD HYDROCHLORIDE
     Dosage: UNK
     Route: 048
     Dates: start: 2012, end: 20140630

REACTIONS (6)
  - Face injury [Unknown]
  - Concussion [Unknown]
  - Loss of consciousness [Unknown]
  - Contusion [Unknown]
  - Fall [Unknown]
  - Memory impairment [Unknown]
